FAERS Safety Report 4662550-2 (Version None)
Quarter: 2005Q2

REPORT INFORMATION
  Report Type: 
  Country: None (occurrence: None)
  Receive Date: 20050516
  Receipt Date: 20050516
  Transmission Date: 20051028
  Serious: Yes (Other)
  Sender: FDA-Public Use
  Company Number: None

PATIENT
  Age: 36 Year
  Sex: Female

DRUGS (12)
  1. VOLTAREN [Suspect]
     Dates: start: 20050201, end: 20050210
  2. ENBREL [Concomitant]
  3. AMBIEN [Concomitant]
  4. NEURONTIN [Concomitant]
  5. VOLTAREN [Concomitant]
  6. FLEXERIL [Concomitant]
  7. PAXIL [Concomitant]
  8. CLARITIN-D [Concomitant]
  9. ALDACTONE [Concomitant]
  10. ZYRTEC-D 12 HOUR [Concomitant]
  11. RHINOCORT [Concomitant]
  12. CALCIUM GLUCONATE [Concomitant]

REACTIONS (1)
  - HEPATOCELLULAR DAMAGE [None]
